FAERS Safety Report 15297035 (Version 3)
Quarter: 2019Q3

REPORT INFORMATION
  Report Type: Other
  Country: JP (occurrence: JP)
  Receive Date: 20180820
  Receipt Date: 20190718
  Transmission Date: 20191004
  Serious: Yes (Hospitalization)
  Sender: FDA-Public Use
  Company Number: JP-LUNDBECK-DKLU2052042

PATIENT
  Age: 11 Week
  Sex: Male

DRUGS (25)
  1. SABRIL [Suspect]
     Active Substance: VIGABATRIN
     Dosage: IN TWO DIVIDED DOSES
     Route: 048
     Dates: start: 20170502, end: 20170507
  2. BENZOIC ACID [Concomitant]
     Active Substance: BENZOIC ACID
     Indication: INFANTILE SPASMS
     Route: 065
     Dates: start: 20170814
  3. PERAMPANEL [Concomitant]
     Active Substance: PERAMPANEL
     Indication: INFANTILE SPASMS
     Route: 065
     Dates: start: 20171117
  4. MAGNESIUM OXIDE. [Concomitant]
     Active Substance: MAGNESIUM OXIDE
     Indication: PRODUCT USED FOR UNKNOWN INDICATION
     Route: 065
  5. SABRIL [Suspect]
     Active Substance: VIGABATRIN
     Dosage: IN TWO DIVIDED DOSES
     Route: 048
     Dates: start: 20170911, end: 20181029
  6. SABRIL [Suspect]
     Active Substance: VIGABATRIN
     Dosage: IN TWO DIVIDED DOSES
     Route: 048
     Dates: start: 20181029, end: 20181103
  7. SABRIL [Suspect]
     Active Substance: VIGABATRIN
     Dosage: IN TWO DIVIDED DOSES
     Route: 048
     Dates: start: 20181103, end: 20181112
  8. SABRIL [Suspect]
     Active Substance: VIGABATRIN
     Dosage: IN TWO DIVIDED DOSES
     Route: 048
     Dates: start: 20181112
  9. DEXTROMETHORPHAN [Concomitant]
     Active Substance: DEXTROMETHORPHAN
     Indication: INFANTILE SPASMS
     Route: 065
     Dates: start: 20170921
  10. SABRIL [Suspect]
     Active Substance: VIGABATRIN
     Dosage: IN TWO DIVIDED DOSES
     Route: 048
     Dates: start: 20170512, end: 20170515
  11. CARTINE [Concomitant]
     Indication: PROPHYLAXIS
     Route: 065
     Dates: start: 20170831
  12. SABRIL [Suspect]
     Active Substance: VIGABATRIN
     Dosage: IN TWO DIVIDED DOSES
     Route: 048
     Dates: start: 20170713, end: 20170806
  13. INCREMIN C IRON [Concomitant]
     Indication: PRODUCT USED FOR UNKNOWN INDICATION
     Route: 065
     Dates: start: 20171006, end: 20180512
  14. BACLOFEN. [Concomitant]
     Active Substance: BACLOFEN
     Indication: INFANTILE SPASMS
     Route: 065
     Dates: start: 20170624, end: 20170831
  15. RAMELTEON [Concomitant]
     Active Substance: RAMELTEON
     Indication: PRODUCT USED FOR UNKNOWN INDICATION
     Route: 065
     Dates: start: 20171201, end: 20181102
  16. SABRIL [Suspect]
     Active Substance: VIGABATRIN
     Dosage: IN TWO DIVIDED DOSES
     Route: 048
     Dates: start: 20170516, end: 20170521
  17. NITRAZEPAM [Concomitant]
     Active Substance: NITRAZEPAM
     Indication: PRODUCT USED FOR UNKNOWN INDICATION
     Route: 065
     Dates: start: 20180811
  18. SABRIL [Suspect]
     Active Substance: VIGABATRIN
     Indication: INFANTILE SPASMS
     Dosage: IN TWO DIVIDED DOSES
     Route: 048
     Dates: start: 20170424, end: 20170427
  19. SABRIL [Suspect]
     Active Substance: VIGABATRIN
     Dosage: IN TWO DIVIDED DOSES
     Route: 048
     Dates: start: 20170428, end: 20170506
  20. SABRIL [Suspect]
     Active Substance: VIGABATRIN
     Dosage: IN TWO DIVIDED DOSES
     Route: 048
     Dates: start: 20170508, end: 20170511
  21. PHENOBARBITAL. [Concomitant]
     Active Substance: PHENOBARBITAL
     Indication: INFANTILE SPASMS
     Route: 065
     Dates: start: 20170523
  22. CARTINE [Concomitant]
     Indication: INVESTIGATION
  23. SABRIL [Suspect]
     Active Substance: VIGABATRIN
     Dosage: IN TWO DIVIDED DOSES
     Route: 048
     Dates: start: 20170522, end: 20170712
  24. SABRIL [Suspect]
     Active Substance: VIGABATRIN
     Dosage: IN TWO DIVIDED DOSES
     Route: 048
     Dates: start: 20170807, end: 20170910
  25. VITAMIN B6 [Concomitant]
     Active Substance: PYRIDOXINE HYDROCHLORIDE
     Indication: INFANTILE SPASMS
     Route: 065
     Dates: start: 20170414, end: 20170423

REACTIONS (3)
  - Sedation [Unknown]
  - Secretion discharge [Recovering/Resolving]
  - Hyperuricaemia [Not Recovered/Not Resolved]

NARRATIVE: CASE EVENT DATE: 20170428
